FAERS Safety Report 17448255 (Version 4)
Quarter: 2020Q2

REPORT INFORMATION
  Report Type: Report from Study
  Country: US (occurrence: US)
  Receive Date: 20200223
  Receipt Date: 20200512
  Transmission Date: 20200713
  Serious: Yes (Hospitalization, Other)
  Sender: FDA-Public Use
  Company Number: NVSC2020US042616

PATIENT
  Age: 76 Year
  Sex: Female

DRUGS (2)
  1. EYLEA [Concomitant]
     Active Substance: AFLIBERCEPT
     Indication: PRODUCT USED FOR UNKNOWN INDICATION
     Dosage: UNK
     Route: 065
  2. BEOVU [Suspect]
     Active Substance: BROLUCIZUMAB-DBLL
     Indication: NEOVASCULAR AGE-RELATED MACULAR DEGENERATION
     Dosage: UNK (VIAL)
     Route: 047
     Dates: start: 20191202, end: 20200107

REACTIONS (8)
  - Eye haemorrhage [Unknown]
  - Blindness [Unknown]
  - Pulmonary embolism [Unknown]
  - Corneal disorder [Unknown]
  - Intraocular pressure test abnormal [Unknown]
  - Macular degeneration [Unknown]
  - Macular oedema [Recovering/Resolving]
  - Vision blurred [Recovering/Resolving]

NARRATIVE: CASE EVENT DATE: 20191202
